FAERS Safety Report 23883750 (Version 1)
Quarter: 2024Q2

REPORT INFORMATION
  Report Type: Spontaneous
  Country: US (occurrence: US)
  Receive Date: 20240522
  Receipt Date: 20240522
  Transmission Date: 20240716
  Serious: No
  Sender: FDA-Public Use
  Company Number: US-GSKCCFUS-Case-02008900_AE-111519

PATIENT
  Sex: Male

DRUGS (1)
  1. TRELEGY ELLIPTA [Suspect]
     Active Substance: FLUTICASONE FUROATE\UMECLIDINIUM BROMIDE\VILANTEROL TRIFENATATE
     Indication: Chronic obstructive pulmonary disease
     Dosage: UNK
     Dates: start: 202401

REACTIONS (5)
  - Oropharyngeal pain [Not Recovered/Not Resolved]
  - Aphonia [Not Recovered/Not Resolved]
  - Dysphonia [Not Recovered/Not Resolved]
  - Speech disorder [Not Recovered/Not Resolved]
  - Condition aggravated [Unknown]
